FAERS Safety Report 15575689 (Version 3)
Quarter: 2018Q4

REPORT INFORMATION
  Report Type: Spontaneous
  Country: US (occurrence: US)
  Receive Date: 20181101
  Receipt Date: 20181231
  Transmission Date: 20190205
  Serious: Yes (Other)
  Sender: FDA-Public Use
  Company Number: US-AKORN PHARMACEUTICALS-2018AKN01652

PATIENT
  Age: 16 Year
  Sex: Male

DRUGS (2)
  1. MYORISAN [Suspect]
     Active Substance: ISOTRETINOIN
     Dosage: 40 MG, 1X/DAY
     Dates: start: 20180523, end: 201809
  2. CLARAVIS [Suspect]
     Active Substance: ISOTRETINOIN
     Dosage: UNK
     Dates: start: 20180731, end: 2018

REACTIONS (5)
  - Acarodermatitis [Recovered/Resolved]
  - Off label use [Recovered/Resolved]
  - Insomnia [Unknown]
  - Mood altered [Unknown]
  - Crying [Unknown]

NARRATIVE: CASE EVENT DATE: 2018
